FAERS Safety Report 20565576 (Version 3)
Quarter: 2022Q2

REPORT INFORMATION
  Report Type: Spontaneous
  Country: US (occurrence: US)
  Receive Date: 20220308
  Receipt Date: 20220513
  Transmission Date: 20220721
  Serious: Yes (Other)
  Sender: FDA-Public Use
  Company Number: US-NOVARTISPH-NVSC2022US053093

PATIENT
  Sex: Female

DRUGS (2)
  1. PROMACTA [Suspect]
     Active Substance: ELTROMBOPAG OLAMINE
     Indication: Huntington^s disease
     Dosage: 50 MG, QD
     Route: 048
     Dates: start: 20210922
  2. PROMACTA [Suspect]
     Active Substance: ELTROMBOPAG OLAMINE
     Dosage: 25 MG, QD
     Route: 048
     Dates: start: 20220404

REACTIONS (4)
  - Tunnel vision [Unknown]
  - Headache [Unknown]
  - Pyrexia [Unknown]
  - Product use in unapproved indication [Unknown]
